FAERS Safety Report 15964983 (Version 1)
Quarter: 2019Q1

REPORT INFORMATION
  Report Type: Spontaneous
  Country: DK (occurrence: DK)
  Receive Date: 20190215
  Receipt Date: 20190215
  Transmission Date: 20190418
  Serious: Yes (Hospitalization)
  Sender: FDA-Public Use
  Company Number: DK-ACCORD-107183

PATIENT
  Age: 78 Year
  Sex: Male

DRUGS (6)
  1. TRANDOLAPRIL AUROBINDO [Concomitant]
     Indication: HYPERTENSION
     Dosage: STRENGTH: 0,5 MG
     Route: 048
  2. ALLOPURINOL TEVA [Concomitant]
     Active Substance: ALLOPURINOL
     Indication: GOUT
     Route: 048
  3. FLUTICASONE. [Concomitant]
     Active Substance: FLUTICASONE
     Indication: CHRONIC OBSTRUCTIVE PULMONARY DISEASE
     Dosage: STRENGTH: 250 MICROGRAMS
     Route: 055
     Dates: end: 20180506
  4. BETOLVEX [Concomitant]
     Active Substance: CYANOCOBALAMIN
     Indication: VITAMIN B12 DEFICIENCY
     Route: 048
  5. CLOPIDOGREL [Suspect]
     Active Substance: CLOPIDOGREL BISULFATE
     Indication: ANTICOAGULANT THERAPY
     Dosage: STRENGTH: 75 MG
     Route: 048
     Dates: end: 20180427
  6. COLGATE DURAPHAT [Concomitant]
     Active Substance: SODIUM FLUORIDE
     Indication: DENTAL CARIES
     Route: 004
     Dates: start: 20180416, end: 20180506

REACTIONS (1)
  - Haemothorax [Recovered/Resolved]

NARRATIVE: CASE EVENT DATE: 20180501
